FAERS Safety Report 5318157-7 (Version None)
Quarter: 2007Q2

REPORT INFORMATION
  Report Type: 
  Country: None (occurrence: None)
  Receive Date: 20070507
  Receipt Date: 20070426
  Transmission Date: 20071010
  Serious: Yes (Other)
  Sender: FDA-Public Use
  Company Number: US-PFIZER INC-2007034971

PATIENT
  Sex: Female
  Weight: 54.9 kg

DRUGS (1)
  1. LYRICA [Suspect]
     Indication: PARAESTHESIA
     Route: 048

REACTIONS (3)
  - ACTIVITIES OF DAILY LIVING IMPAIRED [None]
  - MUSCLE SPASMS [None]
  - WEIGHT INCREASED [None]
